FAERS Safety Report 24952444 (Version 1)
Quarter: 2025Q1

REPORT INFORMATION
  Report Type: Spontaneous
  Country: US (occurrence: US)
  Receive Date: 20250210
  Receipt Date: 20250210
  Transmission Date: 20250409
  Serious: Yes (Other)
  Sender: AMGEN
  Company Number: US-AMGEN-USASP2025022007

PATIENT

DRUGS (3)
  1. EVOLOCUMAB [Suspect]
     Active Substance: EVOLOCUMAB
     Indication: Type IIa hyperlipidaemia
     Dosage: 420 MILLIGRAM, QMO
     Route: 058
  2. EVOLOCUMAB [Suspect]
     Active Substance: EVOLOCUMAB
     Dosage: 140 MILLIGRAM, QMO
     Route: 058
  3. LERODALCIBEP [Concomitant]
     Active Substance: LERODALCIBEP
     Indication: Type IIa hyperlipidaemia
     Dosage: 300 MILLIGRAM, QMO
     Route: 058

REACTIONS (7)
  - Alanine aminotransferase increased [Unknown]
  - Adverse event [Unknown]
  - COVID-19 [Unknown]
  - Toothache [Unknown]
  - Injection site reaction [Unknown]
  - Injection site erythema [Unknown]
  - Headache [Unknown]
